FAERS Safety Report 5897722-2 (Version None)
Quarter: 2008Q3

REPORT INFORMATION
  Report Type: 
  Country: None (occurrence: None)
  Receive Date: 20080925
  Receipt Date: 20080916
  Transmission Date: 20090109
  Serious: Yes (Hospitalization)
  Sender: FDA-Public Use
  Company Number: PHEH2008US08431

PATIENT
  Sex: Male

DRUGS (1)
  1. LOPRESSOR [Suspect]
     Dosage: 12.5 MG, BID
     Route: 048

REACTIONS (5)
  - ACCIDENTAL OVERDOSE [None]
  - ASTHENIA [None]
  - BRADYCARDIA [None]
  - DIZZINESS [None]
  - DRUG DISPENSING ERROR [None]
